FAERS Safety Report 14933773 (Version 2)
Quarter: 2018Q3

REPORT INFORMATION
  Report Type: Spontaneous
  Country: US (occurrence: US)
  Receive Date: 20180524
  Receipt Date: 20180802
  Transmission Date: 20181010
  Serious: No
  Sender: FDA-Public Use
  Company Number: US-PFIZER INC-2018008774

PATIENT
  Age: 77 Year
  Sex: Female
  Weight: 98 kg

DRUGS (1)
  1. DOCETAXEL. [Suspect]
     Active Substance: DOCETAXEL
     Indication: BREAST CANCER
     Dosage: UNK, SINGLE/01 CYCLE
     Dates: start: 20150501, end: 20150501

REACTIONS (5)
  - Alopecia [Not Recovered/Not Resolved]
  - Hair colour changes [Unknown]
  - Hair texture abnormal [Unknown]
  - Madarosis [Not Recovered/Not Resolved]
  - Hair disorder [Unknown]

NARRATIVE: CASE EVENT DATE: 2015
